FAERS Safety Report 8367363-6 (Version None)
Quarter: 2012Q2

REPORT INFORMATION
  Report Type: 
  Country: None (occurrence: None)
  Receive Date: 20120517
  Receipt Date: 20120510
  Transmission Date: 20120825
  Serious: Yes (Other)
  Sender: FDA-Public Use
  Company Number: US-PFIZER INC-US-WYE-H14860710

PATIENT
  Sex: Male
  Weight: 90.7 kg

DRUGS (4)
  1. NAPROXEN (ALEVE) [Interacting]
     Indication: MIGRAINE
     Dosage: 440.0 MG, TOTAL
     Dates: start: 20100401, end: 20100401
  2. BENADRYL [Suspect]
     Indication: LIP SWELLING
     Dosage: 50 MG
  3. MULTI-VITAMINS [Concomitant]
     Dosage: UNK
  4. EFFEXOR XR [Interacting]
     Indication: DEPRESSION
     Dosage: 37.5 MG, 1X/DAY
     Dates: start: 20100201

REACTIONS (12)
  - SWELLING FACE [None]
  - LIP EXFOLIATION [None]
  - PHARYNGEAL OEDEMA [None]
  - DRUG INTERACTION [None]
  - MIGRAINE [None]
  - SWOLLEN TONGUE [None]
  - CHEILITIS [None]
  - CONDITION AGGRAVATED [None]
  - PARAESTHESIA ORAL [None]
  - THERAPEUTIC RESPONSE UNEXPECTED [None]
  - FATIGUE [None]
  - LIP SWELLING [None]
